FAERS Safety Report 12778368 (Version 1)
Quarter: 2016Q3

REPORT INFORMATION
  Report Type: Spontaneous
  Country: BR (occurrence: BR)
  Receive Date: 20160926
  Receipt Date: 20160926
  Transmission Date: 20161109
  Serious: Yes (Death)
  Sender: FDA-Public Use
  Company Number: BR-ASTRAZENECA-2016SF00850

PATIENT
  Age: 12882 Day
  Sex: Male

DRUGS (15)
  1. PROPOFOL. [Suspect]
     Active Substance: PROPOFOL
     Route: 042
  2. DIAZEPAM. [Concomitant]
     Active Substance: DIAZEPAM
  3. PYRAZINAMIDE. [Concomitant]
     Active Substance: PYRAZINAMIDE
  4. MEROPENEM. [Suspect]
     Active Substance: MEROPENEM
     Indication: SEPTIC SHOCK
     Route: 042
     Dates: start: 20160815
  5. MEROPENEM. [Suspect]
     Active Substance: MEROPENEM
     Indication: KLEBSIELLA INFECTION
     Route: 042
     Dates: start: 20160815
  6. ETHAMBUTOL [Concomitant]
     Active Substance: ETHAMBUTOL HYDROCHLORIDE
  7. SEROQUEL [Suspect]
     Active Substance: QUETIAPINE FUMARATE
     Route: 048
  8. FENTANIL [Concomitant]
     Active Substance: FENTANYL
  9. RIFAMPICIN [Concomitant]
     Active Substance: RIFAMPIN
  10. HYDROCORTISONE. [Concomitant]
     Active Substance: HYDROCORTISONE
  11. HALOPERIDOL. [Concomitant]
     Active Substance: HALOPERIDOL
  12. ISONIAZID. [Concomitant]
     Active Substance: ISONIAZID
  13. NOREPINEPHRINE [Concomitant]
     Active Substance: NOREPINEPHRINE\NOREPINEPHRINE BITARTRATE
  14. MIDAZOLAM [Concomitant]
     Active Substance: MIDAZOLAM\MIDAZOLAM HYDROCHLORIDE
  15. RANITIDINE. [Concomitant]
     Active Substance: RANITIDINE

REACTIONS (1)
  - Pathogen resistance [Fatal]

NARRATIVE: CASE EVENT DATE: 20160816
